FAERS Safety Report 18987543 (Version 2)
Quarter: 2021Q4

REPORT INFORMATION
  Report Type: Spontaneous
  Country: US (occurrence: US)
  Receive Date: 20210309
  Receipt Date: 20211104
  Transmission Date: 20220303
  Serious: Yes (Hospitalization, Other)
  Sender: FDA-Public Use
  Company Number: US-PFIZER INC-2021223891

PATIENT
  Age: 66 Year
  Sex: Male
  Weight: 67.77 kg

DRUGS (1)
  1. VFEND [Suspect]
     Active Substance: VORICONAZOLE
     Indication: Lung transplant
     Dosage: 150 MG, 2X/DAY
     Route: 048
     Dates: start: 202011

REACTIONS (5)
  - Dyspnoea [Unknown]
  - Pneumonia [Unknown]
  - Tracheal stenosis [Unknown]
  - Pseudomonas infection [Unknown]
  - Off label use [Unknown]

NARRATIVE: CASE EVENT DATE: 20201101
